FAERS Safety Report 20204180 (Version 4)
Quarter: 2025Q1

REPORT INFORMATION
  Report Type: Report from Study
  Country: GB (occurrence: GB)
  Receive Date: 20211220
  Receipt Date: 20250120
  Transmission Date: 20250408
  Serious: No
  Sender: ABBVIE
  Company Number: GB-ABBVIE-21K-167-4200205-00

PATIENT
  Age: 37 Year
  Sex: Male

DRUGS (11)
  1. HUMIRA [Suspect]
     Active Substance: ADALIMUMAB
     Indication: Colitis ulcerative
     Route: 058
     Dates: start: 20161123, end: 20170907
  2. AZATHIOPRINE [Suspect]
     Active Substance: AZATHIOPRINE
     Indication: Colitis ulcerative
     Route: 048
     Dates: start: 20150801, end: 20170302
  3. NOVORAPID [Concomitant]
     Active Substance: INSULIN ASPART
     Indication: Type 1 diabetes mellitus
     Route: 058
     Dates: start: 20180222
  4. URSODIOL [Concomitant]
     Active Substance: URSODIOL
     Indication: Skin irritation
     Route: 048
     Dates: start: 20060320
  5. LEVEMIR [Concomitant]
     Active Substance: INSULIN DETEMIR
     Indication: Type 1 diabetes mellitus
     Route: 058
     Dates: start: 20180222
  6. OMEPRAZOLE [Concomitant]
     Active Substance: OMEPRAZOLE
     Indication: Prophylaxis
     Route: 048
     Dates: start: 20191127
  7. ACETAMINOPHEN [Concomitant]
     Active Substance: ACETAMINOPHEN
     Indication: Postoperative analgesia
     Route: 048
     Dates: start: 20191127
  8. IBUPROFEN [Concomitant]
     Active Substance: IBUPROFEN
     Indication: Postoperative analgesia
     Route: 048
     Dates: start: 20191127
  9. CODEINE [Concomitant]
     Active Substance: CODEINE
     Indication: Postoperative analgesia
     Route: 048
     Dates: start: 20191127
  10. COLESEVELAM [Concomitant]
     Active Substance: COLESEVELAM
     Indication: Hepatobiliary disease
     Route: 048
     Dates: start: 20191127
  11. OXYCODONE HYDROCHLORIDE [Concomitant]
     Active Substance: OXYCODONE HYDROCHLORIDE
     Indication: Postoperative analgesia
     Route: 048
     Dates: start: 20191127

REACTIONS (1)
  - Cholangitis sclerosing [Recovered/Resolved]

NARRATIVE: CASE EVENT DATE: 20210811
